FAERS Safety Report 8175486-X (Version None)
Quarter: 2012Q1

REPORT INFORMATION
  Report Type: 
  Country: None (occurrence: None)
  Receive Date: 20120229
  Receipt Date: 20120222
  Transmission Date: 20120608
  Serious: Yes (Hospitalization)
  Sender: FDA-Public Use
  Company Number: US-B.I. PHARMACEUTICALS,INC./RIDGEFIELD-2012-BP-03429BP

PATIENT
  Age: 81 Year
  Sex: Female

DRUGS (9)
  1. DIOVAN [Concomitant]
     Indication: HYPERTENSION
  2. PRADAXA [Suspect]
     Indication: ATRIAL FIBRILLATION
     Dosage: 300 MG
     Route: 048
     Dates: start: 20111001
  3. AMBIEN [Concomitant]
     Indication: INSOMNIA
  4. NORVASC [Concomitant]
     Indication: HYPERTENSION
  5. FUROSEMIDE [Concomitant]
     Indication: HYPERTENSION
     Dosage: 80 MG
     Route: 048
     Dates: start: 20110801
  6. LIPITOR [Concomitant]
     Indication: BLOOD CHOLESTEROL INCREASED
  7. GLUCOPHAGE [Concomitant]
     Indication: TYPE 2 DIABETES MELLITUS
  8. SOTALOL HCL [Concomitant]
     Indication: ATRIAL FIBRILLATION
  9. JANUVIA [Concomitant]
     Indication: TYPE 2 DIABETES MELLITUS

REACTIONS (19)
  - BREAST PAIN [None]
  - CHEST PAIN [None]
  - WEIGHT DECREASED [None]
  - ERUCTATION [None]
  - DIARRHOEA [None]
  - FLATULENCE [None]
  - DYSPEPSIA [None]
  - OROPHARYNGEAL PAIN [None]
  - INSOMNIA [None]
  - OEDEMA PERIPHERAL [None]
  - MELAENA [None]
  - DYSPNOEA [None]
  - TINNITUS [None]
  - HEADACHE [None]
  - HAEMATURIA [None]
  - HEART RATE INCREASED [None]
  - HAEMOPTYSIS [None]
  - BREAST DISCOMFORT [None]
  - ARTHRALGIA [None]
